FAERS Safety Report 6070132-3 (Version None)
Quarter: 2009Q1

REPORT INFORMATION
  Report Type: 
  Country: None (occurrence: None)
  Receive Date: 20090209
  Receipt Date: 20090107
  Transmission Date: 20090719
  Serious: No
  Sender: FDA-Public Use
  Company Number: US-BAYER-200910073BCC

PATIENT
  Sex: Female

DRUGS (1)
  1. ALEVE-D SINUS + COLD [Suspect]
     Indication: NASAL CONGESTION

REACTIONS (3)
  - ANXIETY [None]
  - FEELING JITTERY [None]
  - IRRITABILITY [None]
